FAERS Safety Report 10866132 (Version 1)
Quarter: 2015Q1

REPORT INFORMATION
  Report Type: Spontaneous
  Country: GB (occurrence: None)
  Receive Date: 20150219
  Receipt Date: 20150219
  Transmission Date: 20150721
  Serious: Yes (Other)
  Sender: FDA-Public Use
  Company Number: 2015HINLIT0131

PATIENT
  Age: 57 Year
  Sex: Male

DRUGS (1)
  1. RALTEGRAVIR (RALTEGRAVIR) UNKNOWN [Suspect]
     Active Substance: RALTEGRAVIR
     Indication: HIV INFECTION

REACTIONS (5)
  - Lymphadenopathy [None]
  - Hepatitis fulminant [None]
  - Eosinophilia [None]
  - Rash [None]
  - Drug reaction with eosinophilia and systemic symptoms [None]
